FAERS Safety Report 7683762-X (Version None)
Quarter: 2011Q3

REPORT INFORMATION
  Report Type: 
  Country: None (occurrence: None)
  Receive Date: 20110815
  Receipt Date: 20110808
  Transmission Date: 20111222
  Serious: Yes (Other)
  Sender: FDA-Public Use
  Company Number: US-CEPHALON-US017211

PATIENT
  Sex: Female
  Weight: 98 kg

DRUGS (6)
  1. PROVIGIL [Suspect]
     Indication: SLEEP APNOEA SYNDROME
     Route: 048
     Dates: start: 20060301
  2. PREMARIN [Concomitant]
     Indication: HORMONE REPLACEMENT THERAPY
     Route: 065
  3. PROZAC [Concomitant]
     Indication: FIBROMYALGIA
     Route: 065
  4. LASIX [Concomitant]
     Indication: JOINT SWELLING
     Route: 065
  5. MIRAPEX [Concomitant]
     Indication: RESTLESS LEGS SYNDROME
     Route: 065
  6. KEPPRA [Concomitant]
     Indication: CONVULSION
     Route: 065

REACTIONS (6)
  - SENSORY LOSS [None]
  - PARALYSIS [None]
  - ANXIETY [None]
  - SLEEP DISORDER [None]
  - MUSCULOSKELETAL STIFFNESS [None]
  - HEADACHE [None]
